FAERS Safety Report 8185397-1 (Version None)
Quarter: 2012Q1

REPORT INFORMATION
  Report Type: 
  Country: None (occurrence: None)
  Receive Date: 20120305
  Receipt Date: 20120229
  Transmission Date: 20120608
  Serious: Yes (Hospitalization)
  Sender: FDA-Public Use
  Company Number: PHEH2011US011398

PATIENT
  Sex: Female
  Weight: 80 kg

DRUGS (6)
  1. NEORAL [Suspect]
     Indication: RENAL TRANSPLANT
     Dosage: 50 MG, BID
     Route: 048
     Dates: start: 20000401
  2. PROCARDIA [Concomitant]
     Dosage: 90 MG, QD
     Route: 048
  3. MYCOPHENOLATE MOFETIL (CELLCEPT) [Concomitant]
     Indication: PROPHYLAXIS AGAINST TRANSPLANT REJECTION
     Dosage: 1000 MG, BID
     Route: 048
  4. PRILOSEC [Concomitant]
     Dosage: 30 MG, QHS
     Route: 048
  5. PREDNISONE TAB [Concomitant]
     Dosage: 2.5 MG, QD
     Route: 048
  6. LOPRESSOR [Concomitant]
     Dosage: 100 MG, BID
     Route: 048

REACTIONS (8)
  - RENAL FAILURE [None]
  - NAUSEA [None]
  - VOMITING [None]
  - DEHYDRATION [None]
  - ABDOMINAL PAIN [None]
  - LETHARGY [None]
  - RENAL IMPAIRMENT [None]
  - KIDNEY TRANSPLANT REJECTION [None]
